FAERS Safety Report 7067480-7 (Version None)
Quarter: 2010Q4

REPORT INFORMATION
  Report Type: 
  Country: None (occurrence: None)
  Receive Date: 20101006
  Receipt Date: 20100923
  Transmission Date: 20110411
  Serious: Yes (Other)
  Sender: FDA-Public Use
  Company Number: OMX-2010-00082

PATIENT
  Age: 62 Year
  Sex: Male
  Weight: 91.173 kg

DRUGS (5)
  1. EVICEL [Suspect]
     Indication: HAEMOSTASIS
     Dates: start: 20100720, end: 20100720
  2. APPLICATOR [Suspect]
     Dates: start: 20100720, end: 20100720
  3. HEPARIN [Concomitant]
  4. PLAVIX [Concomitant]
  5. ASPIRIN [Concomitant]

REACTIONS (1)
  - RENAL FAILURE ACUTE [None]
